FAERS Safety Report 9360540 (Version 1)
Quarter: 2013Q2

REPORT INFORMATION
  Report Type: Spontaneous
  Country: US (occurrence: US)
  Receive Date: 20130621
  Receipt Date: 20130621
  Transmission Date: 20140414
  Serious: Yes (Other)
  Sender: FDA-Public Use
  Company Number: US-AMGEN-USASP2013043357

PATIENT
  Age: 90 Year
  Sex: Female

DRUGS (1)
  1. PROLIA [Suspect]
     Indication: PRODUCT USED FOR UNKNOWN INDICATION
     Dosage: UNK
     Dates: start: 201304

REACTIONS (6)
  - Terminal state [Unknown]
  - Activities of daily living impaired [Unknown]
  - Feeling abnormal [Unknown]
  - Rash pruritic [Unknown]
  - Blister [Unknown]
  - Skin burning sensation [Unknown]
